FAERS Safety Report 19410531 (Version 1)
Quarter: 2021Q2

REPORT INFORMATION
  Report Type: Spontaneous
  Country: US (occurrence: US)
  Receive Date: 20210611
  Receipt Date: 20210611
  Transmission Date: 20210717
  Serious: No
  Sender: FDA-Public Use
  Company Number: None

PATIENT
  Sex: Female

DRUGS (1)
  1. ICATIBANT ACETATE ++ SYR (3?PA 30MG/3ML TEVA PHARMACEUTIVALS USA [Suspect]
     Active Substance: ICATIBANT ACETATE
     Indication: COMPLEMENT DEFICIENCY DISEASE
     Route: 058
     Dates: start: 2021

REACTIONS (1)
  - Nonspecific reaction [None]
